FAERS Safety Report 11841712 (Version 2)
Quarter: 2016Q1

REPORT INFORMATION
  Report Type: Spontaneous
  Country: AT (occurrence: AT)
  Receive Date: 20151216
  Receipt Date: 20160118
  Transmission Date: 20160526
  Serious: Yes (Other)
  Sender: FDA-Public Use
  Company Number: AT-JNJFOC-20151212111

PATIENT
  Age: 44 Year
  Sex: Male

DRUGS (1)
  1. XARELTO [Suspect]
     Active Substance: RIVAROXABAN
     Indication: PRODUCT USED FOR UNKNOWN INDICATION
     Route: 048
     Dates: start: 201411

REACTIONS (4)
  - Vertigo [Unknown]
  - Gastritis [Recovered/Resolved]
  - Depression [Unknown]
  - Abdominal pain [Unknown]

NARRATIVE: CASE EVENT DATE: 2015
